FAERS Safety Report 9705725 (Version 2)
Quarter: 2015Q3

REPORT INFORMATION
  Report Type: Spontaneous
  Country: US (occurrence: US)
  Receive Date: 20131122
  Receipt Date: 20150803
  Transmission Date: 20151125
  Serious: No
  Sender: FDA-Public Use
  Company Number: US-GILEAD-2008-0017780

PATIENT
  Age: 41 Year
  Sex: Female

DRUGS (10)
  1. PROCARDIA XL [Concomitant]
     Active Substance: NIFEDIPINE
     Route: 048
  2. K-DUR [Concomitant]
     Active Substance: POTASSIUM CHLORIDE
     Route: 048
  3. LETAIRIS [Suspect]
     Active Substance: AMBRISENTAN
     Indication: PULMONARY ARTERIAL HYPERTENSION
     Route: 048
     Dates: start: 20080717
  4. TRIAM/HCTZ [Concomitant]
     Route: 048
  5. COUMADIN [Concomitant]
     Active Substance: WARFARIN SODIUM
     Route: 048
  6. INSULIN REG [Concomitant]
  7. METOPROLOL [Concomitant]
     Active Substance: METOPROLOL
     Route: 048
  8. COUMADIN [Concomitant]
     Active Substance: WARFARIN SODIUM
     Route: 048
  9. SYNTHROID [Concomitant]
     Active Substance: LEVOTHYROXINE SODIUM
     Route: 048
  10. LANTUS [Concomitant]
     Active Substance: INSULIN GLARGINE

REACTIONS (1)
  - Oedema peripheral [None]

NARRATIVE: CASE EVENT DATE: 20080801
